FAERS Safety Report 7271650-2 (Version None)
Quarter: 2011Q1

REPORT INFORMATION
  Report Type: 
  Country: None (occurrence: None)
  Receive Date: 20110203
  Receipt Date: 20110127
  Transmission Date: 20110831
  Serious: Yes (Other)
  Sender: FDA-Public Use
  Company Number: US-JNJFOC-20110107664

PATIENT
  Sex: Female

DRUGS (2)
  1. DURAGESIC-50 [Suspect]
     Indication: ROAD TRAFFIC ACCIDENT
     Dosage: NDC: 50458-093-05
     Route: 062
  2. DURAGESIC-50 [Suspect]
     Indication: SPINAL DEFORMITY
     Dosage: NDC: 50458-093-05
     Route: 062

REACTIONS (3)
  - GOUT [None]
  - LIGAMENT RUPTURE [None]
  - OSTEOPOROSIS [None]
